FAERS Safety Report 17944869 (Version 1)
Quarter: 2020Q2

REPORT INFORMATION
  Report Type: Spontaneous
  Country: FR (occurrence: FR)
  Receive Date: 20200626
  Receipt Date: 20200626
  Transmission Date: 20200714
  Serious: Yes (Hospitalization, Other)
  Sender: FDA-Public Use
  Company Number: FR-AUROBINDO-AUR-APL-2019-019482

PATIENT
  Age: 1 Year
  Sex: Female

DRUGS (18)
  1. AMOXICILLIN/CLAVULANIC ACID [Suspect]
     Active Substance: AMOXICILLIN\CLAVULANIC ACID
     Indication: BETA HAEMOLYTIC STREPTOCOCCAL INFECTION
     Dosage: 100 MILLIGRAM/KILOGRAM, ONCE A DAY
     Route: 042
  2. AUGMENTIN BD [Suspect]
     Active Substance: AMOXICILLIN\CLAVULANIC ACID
     Indication: CELLULITIS
  3. DALACINE [Suspect]
     Active Substance: CLINDAMYCIN
     Indication: OSTEOMYELITIS
  4. CEFTRIAXONE. [Suspect]
     Active Substance: CEFTRIAXONE
     Indication: CELLULITIS
     Dosage: 100 MILLIGRAM, ONCE A DAY
     Route: 042
  5. CEFTRIAXONE. [Suspect]
     Active Substance: CEFTRIAXONE
     Indication: LYMPHADENITIS
  6. AMIKACIN. [Suspect]
     Active Substance: AMIKACIN
     Indication: STREPTOCOCCAL INFECTION
     Dosage: 15 MILLIGRAM/KILOGRAM, ONCE A DAY
     Route: 042
  7. AUGMENTIN BD [Suspect]
     Active Substance: AMOXICILLIN\CLAVULANIC ACID
     Indication: LYMPHADENITIS
     Dosage: UNK
     Route: 048
  8. DALACINE [Suspect]
     Active Substance: CLINDAMYCIN
     Indication: CELLULITIS
  9. AMOXICILLIN/CLAVULANIC ACID [Suspect]
     Active Substance: AMOXICILLIN\CLAVULANIC ACID
     Dosage: UNK
     Route: 048
  10. AMIKACIN. [Suspect]
     Active Substance: AMIKACIN
     Indication: CELLULITIS
  11. AUGMENTIN BD [Suspect]
     Active Substance: AMOXICILLIN\CLAVULANIC ACID
     Indication: BETA HAEMOLYTIC STREPTOCOCCAL INFECTION
  12. DALACINE [Suspect]
     Active Substance: CLINDAMYCIN
     Indication: LYMPHADENITIS
  13. CEFTRIAXONE. [Suspect]
     Active Substance: CEFTRIAXONE
     Indication: OSTEOMYELITIS
     Dosage: 50 MG/KG, 1X/DAY, LATER, THE DOSE WAS DOUBLED
     Route: 042
  14. CEFTRIAXONE. [Suspect]
     Active Substance: CEFTRIAXONE
     Indication: BETA HAEMOLYTIC STREPTOCOCCAL INFECTION
  15. AMIKACIN. [Suspect]
     Active Substance: AMIKACIN
     Indication: LYMPHADENITIS
  16. AMIKACIN. [Suspect]
     Active Substance: AMIKACIN
     Indication: BETA HAEMOLYTIC STREPTOCOCCAL INFECTION
  17. AUGMENTIN BD [Suspect]
     Active Substance: AMOXICILLIN\CLAVULANIC ACID
     Indication: STREPTOCOCCAL INFECTION
     Dosage: 100 MILLIGRAM/KILOGRAM, ONCE A DAY
     Route: 042
  18. DALACINE [Suspect]
     Active Substance: CLINDAMYCIN
     Indication: STREPTOCOCCAL INFECTION
     Dosage: 40 MILLIGRAM/KILOGRAM, ONCE A DAY
     Route: 065

REACTIONS (2)
  - Pyrexia [Recovered/Resolved]
  - Urticaria [Unknown]
